FAERS Safety Report 7652681-7 (Version None)
Quarter: 2011Q3

REPORT INFORMATION
  Report Type: 
  Country: None (occurrence: None)
  Receive Date: 20110803
  Receipt Date: 20110728
  Transmission Date: 20111222
  Serious: Yes (Other)
  Sender: FDA-Public Use
  Company Number: JP-BRACCO-004968

PATIENT
  Sex: Female
  Weight: 52 kg

DRUGS (6)
  1. LASIX [Concomitant]
     Indication: OEDEMA
     Route: 048
     Dates: start: 20110329
  2. ALDACTONE [Concomitant]
     Indication: OEDEMA
     Route: 048
     Dates: start: 20110607
  3. PURSENNID [Concomitant]
     Indication: CONSTIPATION
     Route: 048
     Dates: start: 20110329
  4. IOPAMIDOL [Suspect]
     Indication: BILE DUCT CANCER
     Dosage: INFUSION RATE: 3ML/S FOR 35 SECONDS ADMINISTERED AT RIGHT ELBOW
     Route: 042
     Dates: start: 20110621, end: 20110621
  5. IOPAMIDOL [Suspect]
     Indication: COMPUTERISED TOMOGRAM
     Dosage: INFUSION RATE: 3ML/S FOR 35 SECONDS ADMINISTERED AT RIGHT ELBOW
     Route: 042
     Dates: start: 20110621, end: 20110621
  6. GEMCITABINE [Concomitant]
     Indication: BILE DUCT CANCER
     Route: 042
     Dates: start: 20100701

REACTIONS (5)
  - BLOOD PRESSURE DECREASED [None]
  - DYSPNOEA [None]
  - VOMITING [None]
  - FEELING ABNORMAL [None]
  - OXYGEN SATURATION DECREASED [None]
